FAERS Safety Report 6691269-1 (Version None)
Quarter: 2010Q2

REPORT INFORMATION
  Report Type: 
  Country: None (occurrence: None)
  Receive Date: 20100422
  Receipt Date: 20100409
  Transmission Date: 20101027
  Serious: No
  Sender: FDA-Public Use
  Company Number: US-JNJFOC-20100403292

PATIENT
  Sex: Female
  Weight: 79.38 kg

DRUGS (9)
  1. FENTANYL-100 [Suspect]
     Indication: PAIN
     Dosage: 3 X 100 UG/HR PATCHES
     Route: 062
  2. FENTANYL-100 [Suspect]
     Route: 062
  3. FENTANYL-100 [Suspect]
     Indication: PAIN IN EXTREMITY
     Dosage: 3 X 100 UG/HR PATCHES
     Route: 062
  4. FENTANYL-100 [Suspect]
     Route: 062
  5. FENTANYL-100 [Suspect]
     Indication: PAIN
     Dosage: 3 X 100 UG/HR
     Route: 062
  6. XANAX [Concomitant]
     Indication: ANXIETY
     Route: 048
  7. ZOLOFT [Concomitant]
     Indication: ANXIETY DISORDER
     Route: 048
  8. PERCOCET [Concomitant]
     Indication: BREAKTHROUGH PAIN
     Route: 048
  9. OXYCODONE [Concomitant]
     Indication: BREAKTHROUGH PAIN
     Route: 048

REACTIONS (10)
  - APPLICATION SITE DISCHARGE [None]
  - APPLICATION SITE EROSION [None]
  - APPLICATION SITE EXFOLIATION [None]
  - APPLICATION SITE PAIN [None]
  - APPLICATION SITE RASH [None]
  - APPLICATION SITE REACTION [None]
  - DRUG ADMINISTERED AT INAPPROPRIATE SITE [None]
  - DRUG INEFFECTIVE [None]
  - PAIN [None]
  - WRONG TECHNIQUE IN DRUG USAGE PROCESS [None]
